FAERS Safety Report 9264264 (Version 1)
Quarter: 2013Q2

REPORT INFORMATION
  Report Type: Spontaneous
  Country: GB (occurrence: GB)
  Receive Date: 20130430
  Receipt Date: 20130430
  Transmission Date: 20140414
  Serious: Yes (Other)
  Sender: FDA-Public Use
  Company Number: PHHY2013GB040938

PATIENT
  Age: 49 Year
  Sex: Female

DRUGS (4)
  1. METFORMIN [Suspect]
     Indication: DIABETES MELLITUS
  2. BYETTA [Suspect]
     Indication: DIABETES MELLITUS
  3. INSULIN LISPRO [Suspect]
     Indication: DIABETES MELLITUS
     Dosage: 1 DF, TID
     Route: 058
  4. LANTUS [Suspect]
     Indication: DIABETES MELLITUS

REACTIONS (2)
  - Cerebrovascular accident [Unknown]
  - Memory impairment [Not Recovered/Not Resolved]
